FAERS Safety Report 21323614 (Version 1)
Quarter: 2022Q3

REPORT INFORMATION
  Report Type: Spontaneous
  Country: IL (occurrence: IL)
  Receive Date: 20220912
  Receipt Date: 20220912
  Transmission Date: 20221026
  Serious: Yes (Hospitalization, Congenital Anomaly, Other)
  Sender: FDA-Public Use
  Company Number: IL-DEXPHARM-20221412

PATIENT
  Sex: Male

DRUGS (4)
  1. VENLAFAXINE HYDROCHLORIDE [Suspect]
     Active Substance: VENLAFAXINE HYDROCHLORIDE
     Dosage: TWO 150 MG TABLETS BEFORE BED (300 MG TOTAL DAILY DOSE) IN 2020
     Route: 050
  2. Altman Femina 9 months [Concomitant]
     Dosage: ALTMAN PRENATAL SUPPLEMENT
  3. HUMALOG [Concomitant]
     Active Substance: INSULIN LISPRO
     Dosage: INSULIN LISPRO , 1 UNIT DIVIDED 0.5 IN THE MORNING, 0.5 WITH LUNCH
     Route: 050
  4. LEVEMIR [Concomitant]
     Active Substance: INSULIN DETEMIR
     Dosage: INSULIN DETEMIR INJECTION, 18 UNITS DAILY
     Route: 050

REACTIONS (3)
  - Foetal exposure during pregnancy [Recovering/Resolving]
  - Atrial septal defect [Recovering/Resolving]
  - Congenital pulmonary hypertension [Recovering/Resolving]
